FAERS Safety Report 4868156-4 (Version None)
Quarter: 2005Q4

REPORT INFORMATION
  Report Type: 
  Country: None (occurrence: None)
  Receive Date: 20051223
  Receipt Date: 20051215
  Transmission Date: 20060501
  Serious: Yes (Other)
  Sender: FDA-Public Use
  Company Number: 220443

PATIENT
  Age: 54 Year
  Sex: Female
  Weight: 56.9 kg

DRUGS (12)
  1. RITUXIMAB (RITUXIMAB) CONC FOR SOLUTION FOR INFUSION [Suspect]
     Indication: RHEUMATOID ARTHRITIS
     Dosage: 1000 MG, DAYS 1 + 15, INTRAVENOUS
     Route: 042
     Dates: start: 20041215, end: 20050628
  2. METHYLPREDNISOLONE [Suspect]
     Indication: RHEUMATOID ARTHRITIS
     Dosage: 100 MG, DAYS 1 + 15, INTRAVENOUS
     Route: 042
     Dates: start: 20040615, end: 20050628
  3. PREDNISONE [Suspect]
     Indication: RHEUMATOID ARTHRITIS
     Dosage: ORAL
     Route: 048
  4. PREDNISONE [Concomitant]
  5. AMBIEN [Concomitant]
  6. FOLIC ACID [Concomitant]
  7. METHOTREXATE [Concomitant]
  8. ASPIRIN [Concomitant]
  9. PRILOSEC [Concomitant]
  10. SOMA [Concomitant]
  11. ESTRACE [Concomitant]
  12. PAXIL [Concomitant]

REACTIONS (1)
  - BREAST CANCER FEMALE [None]
